FAERS Safety Report 15367315 (Version 1)
Quarter: 2018Q3

REPORT INFORMATION
  Report Type: Report from Study
  Country: CA (occurrence: CA)
  Receive Date: 20180910
  Receipt Date: 20180910
  Transmission Date: 20181010
  Serious: Yes (Other)
  Sender: FDA-Public Use
  Company Number: CA-JNJFOC-20180901399

PATIENT
  Sex: Male
  Weight: 66.5 kg

DRUGS (1)
  1. REMICADE [Suspect]
     Active Substance: INFLIXIMAB
     Indication: CROHN^S DISEASE
     Dosage: STRENGTH = 100 MG
     Route: 042
     Dates: start: 20180720, end: 20180831

REACTIONS (1)
  - Malignant mediastinal neoplasm [Not Recovered/Not Resolved]

NARRATIVE: CASE EVENT DATE: 2018
